FAERS Safety Report 23348493 (Version 1)
Quarter: 2023Q4

REPORT INFORMATION
  Report Type: Report from Study
  Country: DE (occurrence: DE)
  Receive Date: 20231228
  Receipt Date: 20231228
  Transmission Date: 20240110
  Serious: Yes (Other)
  Sender: FDA-Public Use
  Company Number: DE-Merck Healthcare KGaA-2023496178

PATIENT
  Sex: Male
  Weight: 19 kg

DRUGS (6)
  1. SAIZEN [Suspect]
     Active Substance: SOMATROPIN
     Indication: Renal failure
     Route: 058
     Dates: start: 202210
  2. DIOVAN [Concomitant]
     Active Substance: VALSARTAN
     Indication: Product used for unknown indication
  3. EZEHRON DUO [Concomitant]
     Indication: Product used for unknown indication
     Dosage: 5 MG/10 MG
  4. CHOLECALCIFEROL [Concomitant]
     Active Substance: CHOLECALCIFEROL
     Indication: Product used for unknown indication
  5. ONEALFA [Concomitant]
     Active Substance: ALFACALCIDOL
     Indication: Product used for unknown indication
     Dosage: DROPS
  6. TIDE [TORASEMIDE] [Concomitant]
     Indication: Product used for unknown indication

REACTIONS (11)
  - Hepatic enzyme increased [Not Recovered/Not Resolved]
  - Hypercholesterolaemia [Unknown]
  - Asthma [Unknown]
  - Hypertension [Unknown]
  - Renal function test abnormal [Unknown]
  - Fear of injection [Not Recovered/Not Resolved]
  - Feeling cold [Unknown]
  - Injection site bruising [Unknown]
  - Injection site haemorrhage [Not Recovered/Not Resolved]
  - Wrong technique in product usage process [Unknown]
  - Off label use [Unknown]
